FAERS Safety Report 9565902 (Version 1)
Quarter: 2013Q3

REPORT INFORMATION
  Report Type: Spontaneous
  Country: US (occurrence: US)
  Receive Date: 20130930
  Receipt Date: 20130930
  Transmission Date: 20140515
  Serious: Yes (Other)
  Sender: FDA-Public Use
  Company Number: US-PFIZER INC-2013277140

PATIENT
  Age: 50 Year
  Sex: Female
  Weight: 63.04 kg

DRUGS (5)
  1. PREMARIN [Suspect]
     Indication: HORMONE REPLACEMENT THERAPY
     Dosage: 0.625 MG, 1X/DAY
     Route: 048
     Dates: start: 2006, end: 2007
  2. PREMARIN [Suspect]
     Indication: VULVOVAGINAL DRYNESS
     Dosage: UNK
     Route: 067
     Dates: start: 20130924
  3. PREMARIN [Suspect]
     Indication: HORMONE THERAPY
  4. LEVOXYL [Concomitant]
     Indication: THYROID DISORDER
     Dosage: 150 UG, UNK
  5. LEVOTHYROXINE [Concomitant]
     Indication: THYROID DISORDER
     Dosage: 150 UG, ONCE A DAY FOR 4 DAYS OF WEEK

REACTIONS (3)
  - Precancerous skin lesion [Unknown]
  - Headache [Not Recovered/Not Resolved]
  - Vomiting [Recovered/Resolved]
